FAERS Safety Report 7992821-3 (Version None)
Quarter: 2011Q4

REPORT INFORMATION
  Report Type: 
  Country: None (occurrence: None)
  Receive Date: 20111219
  Receipt Date: 20110420
  Transmission Date: 20120403
  Serious: No
  Sender: FDA-Public Use
  Company Number: US-ASTRAZENECA-2011SE22616

PATIENT
  Age: 52 Year
  Sex: Female

DRUGS (10)
  1. CRESTOR [Suspect]
     Indication: HYPERCHOLESTEROLAEMIA
     Route: 048
     Dates: start: 20060101
  2. ALBUTEROL [Concomitant]
  3. LEVOTHYROXINE SODIUM [Concomitant]
  4. HYDROCODONE [Concomitant]
  5. ACTOS [Concomitant]
  6. LEXAPRO [Concomitant]
  7. TRIAMTERENE [Concomitant]
  8. WARFARIN SODIUM [Concomitant]
  9. FUROSEMIDE [Concomitant]
  10. VITAMIN D [Concomitant]

REACTIONS (3)
  - LARYNGITIS [None]
  - CATARACT [None]
  - CATARACT OPERATION [None]
